FAERS Safety Report 8081744-X (Version None)
Quarter: 2012Q1

REPORT INFORMATION
  Report Type: 
  Country: None (occurrence: None)
  Receive Date: 20120130
  Receipt Date: 20120118
  Transmission Date: 20120608
  Serious: Yes (Other)
  Sender: FDA-Public Use
  Company Number: JP-ELI_LILLY_AND_COMPANY-JP201201005369

PATIENT
  Sex: Male

DRUGS (5)
  1. LASIX [Concomitant]
     Dosage: 20 MG, UNK
     Route: 042
     Dates: start: 20100218, end: 20100218
  2. CISPLATIN [Concomitant]
     Indication: LUNG ADENOCARCINOMA
  3. ALIMTA [Suspect]
     Indication: LUNG ADENOCARCINOMA
     Route: 042
  4. PANVITAN                           /00466101/ [Concomitant]
     Dosage: 1 G, UNK
     Route: 048
     Dates: start: 20100216
  5. EMEND [Concomitant]
     Dosage: 125 MG, UNK
     Route: 048
     Dates: start: 20100216, end: 20100218

REACTIONS (2)
  - RENAL IMPAIRMENT [None]
  - HYPERKALAEMIA [None]
